FAERS Safety Report 7341995-6 (Version None)
Quarter: 2011Q1

REPORT INFORMATION
  Report Type: 
  Country: None (occurrence: None)
  Receive Date: 20110309
  Receipt Date: 20110211
  Transmission Date: 20110831
  Serious: No
  Sender: FDA-Public Use
  Company Number: US-B.I. PHARMACEUTICALS,INC./RIDGEFIELD-2011-BP-05960BP

PATIENT
  Sex: Female

DRUGS (3)
  1. PRADAXA [Suspect]
     Indication: ATRIAL FIBRILLATION
     Dosage: 300 MG
     Route: 048
     Dates: start: 20101201
  2. LEVOTHYROXINE [Concomitant]
     Indication: HYPOTHYROIDISM
  3. ATENOLOL [Concomitant]
     Indication: HEART RATE INCREASED

REACTIONS (3)
  - DIZZINESS [None]
  - NAUSEA [None]
  - ASTHENIA [None]
